FAERS Safety Report 6182885-4 (Version None)
Quarter: 2009Q2

REPORT INFORMATION
  Report Type: 
  Country: None (occurrence: None)
  Receive Date: 20090507
  Receipt Date: 20090427
  Transmission Date: 20091009
  Serious: Yes (Hospitalization, Other)
  Sender: FDA-Public Use
  Company Number: ES-BRISTOL-MYERS SQUIBB COMPANY-14606768

PATIENT
  Age: 49 Year
  Sex: Female

DRUGS (1)
  1. DIDANOSINE [Suspect]
     Indication: HIV INFECTION
     Dates: start: 19960101, end: 19990101

REACTIONS (2)
  - OESOPHAGEAL VARICES HAEMORRHAGE [None]
  - PORTAL HYPERTENSION [None]
